FAERS Safety Report 21672131 (Version 6)
Quarter: 2023Q1

REPORT INFORMATION
  Report Type: Other
  Country: CA (occurrence: None)
  Receive Date: 20221202
  Receipt Date: 20230227
  Transmission Date: 20230418
  Serious: No
  Sender: FDA-Public Use
  Company Number: CA-ROCHE-3227857

PATIENT
  Age: 41 Year
  Sex: Female

DRUGS (11)
  1. OCREVUS [Suspect]
     Active Substance: OCRELIZUMAB
     Indication: Relapsing-remitting multiple sclerosis
     Dosage: THEN 600 MG EVERY 6 MONTH, DATE OF INFUSION: 13/JAN/2023
     Route: 042
     Dates: start: 20220624
  2. AMITRIPTYLINE [Suspect]
     Active Substance: AMITRIPTYLINE
     Indication: Product used for unknown indication
     Route: 065
  3. ZOPICLONE [Concomitant]
     Active Substance: ZOPICLONE
  4. ERGOCALCIFEROL [Concomitant]
     Active Substance: ERGOCALCIFEROL
  5. ROBAXACET [Concomitant]
     Active Substance: ACETAMINOPHEN\METHOCARBAMOL
  6. TYLENOL SINUS (CANADA) [Concomitant]
  7. AMOXICILLIN [Concomitant]
     Active Substance: AMOXICILLIN
  8. BENADRYL [Concomitant]
     Active Substance: DIPHENHYDRAMINE HYDROCHLORIDE
  9. GRAVOL [Concomitant]
     Active Substance: DIMENHYDRINATE
  10. TYLENOL [Concomitant]
     Active Substance: ACETAMINOPHEN
  11. SOLU-MEDROL [Concomitant]
     Active Substance: METHYLPREDNISOLONE SODIUM SUCCINATE

REACTIONS (10)
  - COVID-19 [Recovered/Resolved with Sequelae]
  - Migraine [Recovered/Resolved]
  - Drug ineffective [Unknown]
  - Nightmare [Unknown]
  - Nasal congestion [Recovering/Resolving]
  - Cough [Recovered/Resolved]
  - Upper-airway cough syndrome [Recovering/Resolving]
  - Aphonia [Not Recovered/Not Resolved]
  - Back pain [Not Recovered/Not Resolved]
  - Sinusitis [Recovered/Resolved]

NARRATIVE: CASE EVENT DATE: 20220831
